FAERS Safety Report 8816760 (Version 1)
Quarter: 2012Q4

REPORT INFORMATION
  Report Type: Spontaneous
  Country: US (occurrence: None)
  Receive Date: 20121001
  Receipt Date: 20121001
  Transmission Date: 20130627
  Serious: Yes (Hospitalization)
  Sender: FDA-Public Use
  Company Number: 2012-0931

PATIENT
  Age: 72 Year
  Sex: Female
  Weight: 77.2 kg

DRUGS (14)
  1. CARFILZOMIB [Suspect]
     Indication: MULTIPLE MYELOMA
     Dosage: 35.2 mg (35.2 mg, days 1, 2), intravenous
79.2 mg (79.2 mg, days 8,9, 15, 16), intravenous
     Route: 042
     Dates: start: 20120806, end: 20120814
  2. CARFILZOMIB [Suspect]
     Indication: MULTIPLE MYELOMA
     Route: 042
     Dates: start: 20120904
  3. CYTOXAN [Suspect]
     Indication: MULTIPLE MYELOMA
     Route: 048
     Dates: start: 20120806, end: 20120813
  4. CYTOXAN [Suspect]
     Indication: MULTIPLE MYELOMA
     Route: 048
     Dates: start: 20120904
  5. THALIDOMIDE [Suspect]
     Dosage: 100 mg (100 mg,Days 1 through 28), ORAL
     Route: 048
     Dates: start: 20120806, end: 20120814
  6. THALIDOMIDE [Suspect]
     Route: 048
     Dates: start: 20120904
  7. DEXAMETHASON [Suspect]
     Route: 048
     Dates: start: 20120806, end: 20120813
  8. DEXAMETHASON [Suspect]
     Route: 048
     Dates: start: 20120904
  9. LEVOTHYROXINE(LEVOTHYROXINE)(LEVOTHYROXINE) [Concomitant]
  10. PRADAXA(DABIGATRANETEXILATE [Concomitant]
  11. METOPROLOL [Concomitant]
  12. IBUPROFEN(IBUPROFEN)(IBUPROFEN) [Concomitant]
  13. PREMARIN CREAM(ESTROGENS CONJUGATED)(ESTROGENS CONJUGATED) [Concomitant]
  14. AMBIEN(ZOLPIDEM TARTRATE)(ZOLPIDEM TARTRATE) [Concomitant]

REACTIONS (7)
  - Atrial fibrillation [None]
  - Hyperuricaemia [None]
  - Cardiac failure [None]
  - Blood creatinine increased [None]
  - Hypertensive heart disease [None]
  - Pulmonary hypertension [None]
  - Epistaxis [None]
